FAERS Safety Report 10229582 (Version 2)
Quarter: 2015Q3

REPORT INFORMATION
  Report Type: Report from Study
  Country: US (occurrence: US)
  Receive Date: 20140611
  Receipt Date: 20150701
  Transmission Date: 20151125
  Serious: Yes (Hospitalization)
  Sender: FDA-Public Use
  Company Number: 2014SP003078

PATIENT
  Age: 15 Year
  Sex: Male
  Weight: 68 kg

DRUGS (3)
  1. LURASIDONE HCL [Suspect]
     Active Substance: LURASIDONE
     Indication: SCHIZOPHRENIA
     Route: 048
     Dates: start: 20140825, end: 20140923
  2. ATIVAN [Concomitant]
     Active Substance: LORAZEPAM
     Indication: AGITATION
     Route: 048
     Dates: start: 20140922
  3. ATIVAN [Concomitant]
     Active Substance: LORAZEPAM
     Indication: AGITATION
     Route: 048
     Dates: start: 20140910

REACTIONS (1)
  - Homicidal ideation [Recovered/Resolved]

NARRATIVE: CASE EVENT DATE: 20140923
